FAERS Safety Report 5324048-8 (Version None)
Quarter: 2007Q2

REPORT INFORMATION
  Report Type: 
  Country: None (occurrence: None)
  Receive Date: 20070509
  Receipt Date: 20070509
  Transmission Date: 20071010
  Serious: Yes (Death)
  Sender: FDA-Public Use
  Company Number: None

PATIENT
  Sex: Female
  Weight: 54.4316 kg

DRUGS (1)
  1. ARANESP [Suspect]
     Indication: HAEMOGLOBIN DECREASED
     Dates: start: 20060315, end: 20060315

REACTIONS (8)
  - ABNORMAL BEHAVIOUR [None]
  - ASTHENIA [None]
  - COMMUNICATION DISORDER [None]
  - DIZZINESS [None]
  - FALL [None]
  - HAEMOGLOBIN DECREASED [None]
  - MYOCARDIAL INFARCTION [None]
  - SPEECH DISORDER [None]
